FAERS Safety Report 13345489 (Version 1)
Quarter: 2017Q1

REPORT INFORMATION
  Report Type: Spontaneous
  Country: US (occurrence: US)
  Receive Date: 20170316
  Receipt Date: 20170316
  Transmission Date: 20170428
  Serious: No
  Sender: FDA-Public Use
  Company Number: None

PATIENT
  Age: 61 Year
  Sex: Female

DRUGS (1)
  1. IBRANCE [Suspect]
     Active Substance: PALBOCICLIB
     Indication: BREAST CANCER FEMALE
     Dosage: 125 MG DAILY FOR 21 DAYS THEN OFF FOR 7 DAYS PO
     Route: 048
     Dates: start: 20161109

REACTIONS (1)
  - Arthralgia [None]

NARRATIVE: CASE EVENT DATE: 20170218
